FAERS Safety Report 19026148 (Version 1)
Quarter: 2021Q1

REPORT INFORMATION
  Report Type: Spontaneous
  Country: US (occurrence: US)
  Receive Date: 20210316
  Receipt Date: 20210316
  Transmission Date: 20210420
  Serious: Yes (Hospitalization)
  Sender: FDA-Public Use
  Company Number: None

PATIENT
  Age: 49 Year
  Sex: Male

DRUGS (2)
  1. HUMIRA [Suspect]
     Active Substance: ADALIMUMAB
     Indication: ANKYLOSING SPONDYLITIS
     Dosage: ?          OTHER FREQUENCY:Q2WK ;?DOSE: 1 PEN
     Route: 058
     Dates: start: 20200308
  2. NAPROXEN. [Concomitant]
     Active Substance: NAPROXEN

REACTIONS (2)
  - Vision blurred [None]
  - Blood glucose increased [None]

NARRATIVE: CASE EVENT DATE: 20210316
